FAERS Safety Report 23280432 (Version 1)
Quarter: 2023Q4

REPORT INFORMATION
  Report Type: Spontaneous
  Country: CN (occurrence: None)
  Receive Date: 20231211
  Receipt Date: 20231211
  Transmission Date: 20240110
  Serious: Yes (Hospitalization)
  Sender: FDA-Public Use
  Company Number: CN-ROCHE-3470119

PATIENT
  Age: 7 Year
  Sex: Female
  Weight: 19.5 kg

DRUGS (11)
  1. MABTHERA [Suspect]
     Active Substance: RITUXIMAB
     Indication: Burkitt^s lymphoma
     Route: 041
     Dates: start: 20231108, end: 20231108
  2. CYCLOPHOSPHAMIDE [Suspect]
     Active Substance: CYCLOPHOSPHAMIDE
     Indication: Burkitt^s lymphoma
     Route: 041
     Dates: start: 20231108, end: 20231113
  3. PIRARUBICIN HYDROCHLORIDE [Suspect]
     Active Substance: PIRARUBICIN HYDROCHLORIDE
     Indication: Burkitt^s lymphoma
     Route: 041
     Dates: start: 20231111, end: 20231113
  4. VINCRISTINE SULFATE [Suspect]
     Active Substance: VINCRISTINE SULFATE
     Indication: Burkitt^s lymphoma
     Route: 041
     Dates: start: 20231108, end: 20231109
  5. METHOTREXATE [Suspect]
     Active Substance: METHOTREXATE
     Indication: Burkitt^s lymphoma
     Route: 041
     Dates: start: 20231109, end: 20231109
  6. PROMETHAZINE HYDROCHLORIDE [Concomitant]
     Active Substance: PROMETHAZINE HYDROCHLORIDE
     Indication: Antiallergic therapy
     Dates: start: 20231108
  7. GLUTATHIONE [Concomitant]
     Active Substance: GLUTATHIONE
     Dates: start: 20231108
  8. MESNA [Concomitant]
     Active Substance: MESNA
     Dates: start: 20231108
  9. LEUCOVORIN CALCIUM [Concomitant]
     Active Substance: LEUCOVORIN CALCIUM
     Dates: start: 20231108
  10. KANG FU XIN [Concomitant]
     Indication: Mouth ulceration
  11. SODIUM BICARBONATE [Concomitant]
     Active Substance: SODIUM BICARBONATE
     Indication: Mouth ulceration

REACTIONS (4)
  - Myelosuppression [Recovering/Resolving]
  - Infection [Recovering/Resolving]
  - Mouth ulceration [Recovering/Resolving]
  - Off label use [Unknown]

NARRATIVE: CASE EVENT DATE: 20231118
